FAERS Safety Report 10934618 (Version 4)
Quarter: 2015Q2

REPORT INFORMATION
  Report Type: Spontaneous
  Country: US (occurrence: US)
  Receive Date: 20150320
  Receipt Date: 20150615
  Transmission Date: 20150821
  Serious: Yes (Death, Hospitalization, Other)
  Sender: FDA-Public Use
  Company Number: US-PFIZER INC-2015095942

PATIENT
  Age: 69 Year
  Sex: Female

DRUGS (7)
  1. ASPIRIN EC [Concomitant]
     Active Substance: ASPIRIN
     Dosage: 81 MG, 1X/DAY (1 TABLET (81 MG TOTAL)
     Route: 048
  2. DEPAKOTE ER [Concomitant]
     Active Substance: DIVALPROEX SODIUM
     Dosage: 500 MG, 2X/DAY (1 TABLET (500 MG TOTAL))
     Route: 048
  3. DECADRON [Concomitant]
     Active Substance: DEXAMETHASONE
     Dosage: 6 MG, DAILY (1 TABLET (6 MG TOTAL) WITH BREAKFAST)
     Route: 048
  4. XALKORI [Suspect]
     Active Substance: CRIZOTINIB
     Indication: NON-SMALL CELL LUNG CANCER
  5. LIPITOR [Concomitant]
     Active Substance: ATORVASTATIN CALCIUM
     Dosage: 10 MG, 1X/DAY (1 TABLET (10 MG TOTAL))
     Route: 048
  6. XALKORI [Suspect]
     Active Substance: CRIZOTINIB
     Indication: NEOPLASM MALIGNANT
     Dosage: 250 MG, 2X/DAY
     Route: 048
     Dates: start: 20150306, end: 20150309
  7. LOPRESSOR [Concomitant]
     Active Substance: METOPROLOL TARTRATE
     Dosage: 25 MG, 2X/DAY (1 TABLET (25 MG TOTAL)/DO NOT CRUSH OR CHEW)
     Route: 048

REACTIONS (18)
  - Disease progression [Fatal]
  - Peripheral swelling [Unknown]
  - Asthenia [Unknown]
  - Dehydration [Unknown]
  - Decreased appetite [Unknown]
  - Apnoeic attack [Unknown]
  - Heart rate increased [Unknown]
  - Thirst [Unknown]
  - Dizziness [Unknown]
  - Orthopnoea [Unknown]
  - Swelling [Unknown]
  - Pleural effusion [Unknown]
  - Dyspnoea [Unknown]
  - Blood urea abnormal [Unknown]
  - Blood creatinine abnormal [Unknown]
  - Non-small cell lung cancer [Fatal]
  - Haemorrhage [Unknown]
  - Respiratory arrest [Unknown]

NARRATIVE: CASE EVENT DATE: 20150307
